FAERS Safety Report 11996368 (Version 2)
Quarter: 2016Q1

REPORT INFORMATION
  Report Type: Spontaneous
  Country: DE (occurrence: DE)
  Receive Date: 20160203
  Receipt Date: 20160318
  Transmission Date: 20160526
  Serious: Yes (Other)
  Sender: FDA-Public Use
  Company Number: DE-SA-2016SA016211

PATIENT
  Age: 39 Year
  Sex: Female
  Weight: 70 kg

DRUGS (5)
  1. SPASMEX [Concomitant]
     Active Substance: TROSPIUM CHLORIDE
     Indication: MUSCLE SPASTICITY
     Route: 048
  2. FAMPYRA [Concomitant]
     Active Substance: DALFAMPRIDINE
     Indication: MUSCLE SPASTICITY
     Route: 048
  3. LEMTRADA [Suspect]
     Active Substance: ALEMTUZUMAB
     Indication: MULTIPLE SCLEROSIS
     Route: 041
     Dates: start: 20151103, end: 20151105
  4. PROPYCIL [Concomitant]
     Active Substance: PROPYLTHIOURACIL
     Indication: AUTOIMMUNE THYROIDITIS
     Route: 048
  5. SELEN [Concomitant]
     Active Substance: SELENIUM
     Indication: AUTOIMMUNE THYROIDITIS
     Route: 048

REACTIONS (1)
  - Intraductal proliferative breast lesion [Not Recovered/Not Resolved]

NARRATIVE: CASE EVENT DATE: 20160120
